FAERS Safety Report 10572767 (Version 1)
Quarter: 2014Q4

REPORT INFORMATION
  Report Type: Spontaneous
  Country: US (occurrence: None)
  Receive Date: 20141106
  Receipt Date: 20141106
  Transmission Date: 20150529
  Serious: Yes (Hospitalization)
  Sender: FDA-Public Use
  Company Number: VAL_03555_2014

PATIENT
  Age: 1 Year
  Sex: Male

DRUGS (7)
  1. FERROUS SULFATE [Concomitant]
     Active Substance: FERROUS SULFATE\FERROUS SULFATE, DRIED
  2. ZOSYN [Concomitant]
     Active Substance: PIPERACILLIN SODIUM\TAZOBACTAM SODIUM
  3. POLYVISOL [Concomitant]
  4. EPOGEN [Concomitant]
     Active Substance: ERYTHROPOIETIN
  5. CALCITRIOL. [Suspect]
     Active Substance: CALCITRIOL
     Indication: PRODUCT USED FOR UNKNOWN INDICATION
     Dosage: 1X/WEEK, EACH MONDAY ORAL)
     Route: 048
  6. KAYEXALATE [Concomitant]
     Active Substance: SODIUM POLYSTYRENE SULFONATE
  7. KIONEX [Concomitant]
     Active Substance: SODIUM POLYSTYRENE SULFONATE

REACTIONS (14)
  - Peritonitis [None]
  - Blood alkaline phosphatase increased [None]
  - Blood calcium increased [None]
  - Infection [None]
  - Seizure [None]
  - Aspartate aminotransferase increased [None]
  - Blood creatinine increased [None]
  - Hydrocele [None]
  - Breath holding [None]
  - Cardiac murmur [None]
  - Scrotal swelling [None]
  - Pruritus generalised [None]
  - Tachycardia [None]
  - Blood urea increased [None]

NARRATIVE: CASE EVENT DATE: 20120702
